FAERS Safety Report 21300769 (Version 2)
Quarter: 2022Q4

REPORT INFORMATION
  Report Type: Spontaneous
  Country: US (occurrence: US)
  Receive Date: 20220907
  Receipt Date: 20221007
  Transmission Date: 20230113
  Serious: Yes (Other)
  Sender: FDA-Public Use
  Company Number: US-NOVOPROD-953698

PATIENT
  Sex: Female

DRUGS (1)
  1. LEVEMIR [Suspect]
     Active Substance: INSULIN DETEMIR
     Indication: Type 1 diabetes mellitus
     Dosage: 20 IU, BID
     Route: 058
     Dates: start: 20130114, end: 20210928

REACTIONS (4)
  - Transient ischaemic attack [Unknown]
  - Hypoglycaemic unconsciousness [Recovered/Resolved]
  - Hypotension [Unknown]
  - Confusional state [Not Recovered/Not Resolved]
